FAERS Safety Report 14732454 (Version 1)
Quarter: 2018Q2

REPORT INFORMATION
  Report Type: Report from Study
  Country: US (occurrence: US)
  Receive Date: 20180409
  Receipt Date: 20180409
  Transmission Date: 20180711
  Serious: Yes (Hospitalization, Other)
  Sender: FDA-Public Use
  Company Number: US-TAIHO ONCOLOGY INC-EU-2018-00446

PATIENT
  Age: 60 Year
  Sex: Male
  Weight: 78.54 kg

DRUGS (1)
  1. LONSURF [Suspect]
     Active Substance: TIPIRACIL HYDROCHLORIDE\TRIFLURIDINE
     Indication: COLON CANCER
     Dosage: LAST CYCLE STARTED ON 12 MARCH 2018
     Route: 048
     Dates: start: 201712, end: 2018

REACTIONS (2)
  - Somnolence [Unknown]
  - Cytopenia [Unknown]

NARRATIVE: CASE EVENT DATE: 20180325
